FAERS Safety Report 9130468 (Version 4)
Quarter: 2013Q2

REPORT INFORMATION
  Report Type: Spontaneous
  Country: US (occurrence: US)
  Receive Date: 20130301
  Receipt Date: 20130528
  Transmission Date: 20140414
  Serious: Yes (Hospitalization, Other)
  Sender: FDA-Public Use
  Company Number: US-009507513-1302USA013158

PATIENT
  Age: 25 Year
  Sex: Female
  Weight: 64.4 kg

DRUGS (12)
  1. VICTRELIS [Suspect]
     Indication: HEPATITIS C
     Dosage: 2400 MG, QD
     Route: 048
     Dates: start: 20110726, end: 20120308
  2. REBETOL [Suspect]
     Indication: HEPATITIS C
     Dosage: 1200 MG, QD
     Dates: start: 20110622, end: 201108
  3. REBETOL [Suspect]
     Dosage: 400 MG, BID
     Route: 048
     Dates: start: 201108, end: 20120518
  4. PEGASYS [Suspect]
     Indication: HEPATITIS C
     Dosage: 45, 90 OR 180 MCG QW DEPENDING ON CBC
     Dates: start: 20110622, end: 20120518
  5. ASPIRIN [Concomitant]
     Indication: PROPHYLAXIS
     Dosage: 81 MG, QD
     Route: 048
     Dates: start: 2010
  6. PEN-VEE K [Concomitant]
     Indication: PROPHYLAXIS
     Dosage: 250 MG, QD
     Route: 048
     Dates: start: 2010
  7. ZOLOFT [Concomitant]
     Indication: DEPRESSION
     Dosage: 50-100 MG QD
     Route: 048
     Dates: start: 2010
  8. FOLIC ACID [Concomitant]
     Dosage: 1 MG, QD
     Route: 048
     Dates: start: 2010
  9. DESFERAL [Concomitant]
     Indication: CHELATION THERAPY
     Dosage: 2500 MG 4X/WK
     Dates: start: 2010
  10. EXJADE [Concomitant]
     Indication: CHELATION THERAPY
     Dosage: 1500 MG, QD
     Dates: start: 2010
  11. VITAMINS (UNSPECIFIED) [Concomitant]
  12. RELIEF (ACETAMINOPHEN) [Concomitant]
     Indication: HEADACHE
     Dosage: UNK, PRN

REACTIONS (31)
  - Transfusion [Unknown]
  - Anaemia [Recovered/Resolved]
  - Neutrophil count decreased [Recovered/Resolved]
  - Iron overload [Unknown]
  - Thalassaemia beta [Unknown]
  - Depression [Unknown]
  - Dysgeusia [Recovered/Resolved]
  - Erythema [Recovered/Resolved]
  - Upper respiratory tract infection [Unknown]
  - Vomiting [Recovered/Resolved]
  - Neutropenia [Unknown]
  - Costochondritis [Unknown]
  - Weight increased [Unknown]
  - Gastrooesophageal reflux disease [Unknown]
  - Thrombocytopenia [Recovering/Resolving]
  - Constipation [Unknown]
  - Haemorrhoids [Unknown]
  - Nasopharyngitis [Recovered/Resolved]
  - Diarrhoea [Recovered/Resolved]
  - Vomiting [Recovered/Resolved]
  - Alopecia [Unknown]
  - Dry skin [Unknown]
  - Viral infection [Unknown]
  - Diarrhoea [Unknown]
  - Arthralgia [Unknown]
  - Rash [Unknown]
  - Pancytopenia [Unknown]
  - Pyrexia [Unknown]
  - Dehydration [Unknown]
  - Pyrexia [Unknown]
  - Dermatitis allergic [Unknown]
